FAERS Safety Report 8393958-X (Version None)
Quarter: 2012Q2

REPORT INFORMATION
  Report Type: 
  Country: None (occurrence: None)
  Receive Date: 20120517
  Receipt Date: 20120502
  Transmission Date: 20120825
  Serious: Yes (Hospitalization)
  Sender: FDA-Public Use
  Company Number: 2012SP023364

PATIENT
  Sex: Male

DRUGS (1)
  1. CORICIDIN [Suspect]
     Indication: EUPHORIC MOOD

REACTIONS (2)
  - INTENTIONAL OVERDOSE [None]
  - INTENTIONAL DRUG MISUSE [None]
